FAERS Safety Report 11528724 (Version 1)
Quarter: 2015Q3

REPORT INFORMATION
  Report Type: Spontaneous
  Country: US (occurrence: US)
  Receive Date: 20150921
  Receipt Date: 20150921
  Transmission Date: 20151125
  Serious: No
  Sender: FDA-Public Use
  Company Number: US-ASTRAZENECA-2014SE48859

PATIENT
  Age: 48 Year
  Sex: Female
  Weight: 98.9 kg

DRUGS (13)
  1. BYETTA [Suspect]
     Active Substance: EXENATIDE
     Dosage: UNK
     Route: 058
     Dates: start: 20140621
  2. ASPIRIN. [Concomitant]
     Active Substance: ASPIRIN
  3. PERCOCET [Concomitant]
     Active Substance: ACETAMINOPHEN\OXYCODONE HYDROCHLORIDE
  4. ARTANE [Concomitant]
     Active Substance: TRIHEXYPHENIDYL HYDROCHLORIDE
  5. OMEPRAZOLE. [Concomitant]
     Active Substance: OMEPRAZOLE
  6. SIMVASTATIN. [Concomitant]
     Active Substance: SIMVASTATIN
  7. ABILIFY [Concomitant]
     Active Substance: ARIPIPRAZOLE
  8. LATUDA [Concomitant]
     Active Substance: LURASIDONE HYDROCHLORIDE
  9. METFORMIN [Concomitant]
     Active Substance: METFORMIN HYDROCHLORIDE
  10. GLIPIZIDE. [Concomitant]
     Active Substance: GLIPIZIDE
  11. IRON [Concomitant]
     Active Substance: IRON
  12. VITAMIN D [Concomitant]
     Active Substance: CHOLECALCIFEROL
  13. BUPROPION. [Concomitant]
     Active Substance: BUPROPION

REACTIONS (4)
  - Injection site bruising [Unknown]
  - Product quality issue [Unknown]
  - Intentional device misuse [Unknown]
  - Polymenorrhoea [Unknown]

NARRATIVE: CASE EVENT DATE: 201406
